FAERS Safety Report 7919318-0 (Version None)
Quarter: 2011Q4

REPORT INFORMATION
  Report Type: 
  Country: None (occurrence: None)
  Receive Date: 20111116
  Receipt Date: 20111116
  Transmission Date: 20120403
  Serious: No
  Sender: FDA-Public Use
  Company Number: None

PATIENT
  Sex: Male

DRUGS (1)
  1. TASIGNA [Suspect]
     Indication: CHRONIC MYELOID LEUKAEMIA
     Dosage: 200MG BID ORAL THEN 300MG BID ORAL
     Route: 048
     Dates: start: 20110301, end: 20111101

REACTIONS (1)
  - EJECTION FRACTION DECREASED [None]
